FAERS Safety Report 6431601-7 (Version None)
Quarter: 2009Q4

REPORT INFORMATION
  Report Type: 
  Country: None (occurrence: None)
  Receive Date: 20091106
  Receipt Date: 20091026
  Transmission Date: 20100525
  Serious: Yes (Hospitalization)
  Sender: FDA-Public Use
  Company Number: AR-AMGEN-US372390

PATIENT
  Sex: Female
  Weight: 67 kg

DRUGS (4)
  1. ENBREL [Suspect]
     Indication: RHEUMATOID ARTHRITIS
     Route: 058
     Dates: start: 20081103, end: 20090901
  2. MEPREDNISONE [Concomitant]
     Route: 065
  3. PARACETAMOL [Concomitant]
     Dosage: 500 MG EVERY 1 PRN
     Route: 065
  4. LASIX [Concomitant]
     Route: 065

REACTIONS (2)
  - ARTHRITIS INFECTIVE [None]
  - RENAL FAILURE [None]
